FAERS Safety Report 5735744-2 (Version None)
Quarter: 2008Q2

REPORT INFORMATION
  Report Type: 
  Country: None (occurrence: None)
  Receive Date: 20080513
  Receipt Date: 20080507
  Transmission Date: 20081010
  Serious: Yes (Death, Hospitalization)
  Sender: FDA-Public Use
  Company Number: BR-BRISTOL-MYERS SQUIBB COMPANY-14186100

PATIENT
  Age: 19 Year
  Sex: Male

DRUGS (11)
  1. WARFARIN SODIUM [Suspect]
     Dosage: DOSAGE FORM=TABLET
  2. CAPTOPRIL [Suspect]
     Dosage: ALSO TOOK 12.5 MG EVERY 8 HOURS
  3. ENOXAPARIN SODIUM [Suspect]
  4. PROPRANOLOL HYDROCHLORIDE [Suspect]
  5. SPIRONOLACTONE [Suspect]
  6. FUROSEMIDE [Suspect]
     Dosage: MORNING. ALSO TOOK EVERY 12 HOURS INTRAVENOUSLY
  7. AAS [Suspect]
  8. DIGOXIN [Suspect]
  9. CARVEDILOL [Suspect]
  10. SIMVASTATIN [Suspect]
  11. MONOCORDIL [Suspect]
     Dosage: AT 8:00 A.M. AND AT 2:00 P.M.

REACTIONS (2)
  - CARDIOPULMONARY FAILURE [None]
  - CORONARY ARTERY OCCLUSION [None]
